FAERS Safety Report 16917512 (Version 1)
Quarter: 2019Q4

REPORT INFORMATION
  Report Type: Spontaneous
  Country: CA (occurrence: CA)
  Receive Date: 20191015
  Receipt Date: 20191015
  Transmission Date: 20200122
  Serious: Yes (Other)
  Sender: FDA-Public Use
  Company Number: CA-TEVA-2019-CA-1119711

PATIENT
  Sex: Female

DRUGS (36)
  1. DIPHENHYDRAMINE. [Concomitant]
     Active Substance: DIPHENHYDRAMINE
  2. LOSEC [Concomitant]
     Active Substance: OMEPRAZOLE
  3. PULMICORT TURBUHALER [Concomitant]
     Active Substance: BUDESONIDE
  4. REACTINE [CETIRIZINE HYDROCHLORIDE] [Concomitant]
     Active Substance: CETIRIZINE HYDROCHLORIDE
  5. ATIVAN [Concomitant]
     Active Substance: LORAZEPAM
  6. ATROVENT HFA [Concomitant]
     Active Substance: IPRATROPIUM BROMIDE
  7. DOXYCYCLINE. [Concomitant]
     Active Substance: DOXYCYCLINE
  8. HYDERM[HYDROCORTISONE] [Concomitant]
  9. PMS-IPRATROPIUM [Concomitant]
  10. AMLODIPINE BESILATE [Suspect]
     Active Substance: AMLODIPINE BESYLATE
     Indication: PRODUCT USED FOR UNKNOWN INDICATION
     Route: 065
  11. AMOXICILLIN. [Concomitant]
     Active Substance: AMOXICILLIN
  12. BECLOMETHASONE DIPROPIONATE [Concomitant]
     Active Substance: BECLOMETHASONE DIPROPIONATE
  13. DICLOFENAC [Concomitant]
     Active Substance: DICLOFENAC
  14. DOMPERIDONE MALEATE [Concomitant]
     Active Substance: DOMPERIDONE MALEATE
  15. PATANOL [Concomitant]
     Active Substance: OLOPATADINE HYDROCHLORIDE
  16. AVAPRO [Concomitant]
     Active Substance: IRBESARTAN
  17. DETROL LA [Concomitant]
     Active Substance: TOLTERODINE TARTRATE
  18. COLESTID [Concomitant]
     Active Substance: COLESTIPOL HYDROCHLORIDE
  19. DIPHENHYDRAMINE HYDROCHLORIDE. [Concomitant]
     Active Substance: DIPHENHYDRAMINE HYDROCHLORIDE
  20. FLOVENT [Concomitant]
     Active Substance: FLUTICASONE PROPIONATE
  21. GRAVOL [Concomitant]
     Active Substance: DIMENHYDRINATE
  22. HYDROMORPH CONTIN [Concomitant]
     Active Substance: HYDROMORPHONE
  23. SOLU-MEDROL [Concomitant]
     Active Substance: METHYLPREDNISOLONE SODIUM SUCCINATE
  24. VENTOLIN [Concomitant]
     Active Substance: ALBUTEROL SULFATE
  25. BETADERM[BETAMETHASONE] [Concomitant]
  26. DEMEROL [Concomitant]
     Active Substance: MEPERIDINE HYDROCHLORIDE
  27. EPIPEN [Concomitant]
     Active Substance: EPINEPHRINE
  28. MAGNESIUM GLUCONATE [Concomitant]
     Active Substance: MAGNESIUM GLUCONATE
  29. TARO-TERCONAZOLE [Concomitant]
  30. CALCIUM CARBONATE/VITAMIN D3 [Concomitant]
     Active Substance: CALCIUM CARBONATE\CHOLECALCIFEROL
  31. PMS-HYDROMORPHONE [Concomitant]
     Active Substance: HYDROMORPHONE HYDROCHLORIDE
  32. PMS-SALBUTAMOL [Concomitant]
  33. MEDROL[METHYLPREDNISOLONE] [Concomitant]
  34. SYMBICORT [Concomitant]
     Active Substance: BUDESONIDE\FORMOTEROL FUMARATE DIHYDRATE
  35. TEVA RISEDRONATE [Concomitant]
     Active Substance: RISEDRONATE SODIUM
  36. TOPICORT[DESOXIMETASONE] [Concomitant]

REACTIONS (16)
  - Dry mouth [Recovered/Resolved]
  - Headache [Recovered/Resolved]
  - Pruritus [Recovered/Resolved]
  - Dizziness [Recovered/Resolved]
  - Erythema [Recovered/Resolved]
  - Feeling hot [Recovered/Resolved]
  - Joint swelling [Recovered/Resolved]
  - Fatigue [Recovered/Resolved]
  - Urticaria [Recovered/Resolved]
  - Muscle spasms [Recovered/Resolved]
  - Dysphonia [Recovered/Resolved]
  - Peripheral swelling [Recovered/Resolved]
  - Tremor [Recovered/Resolved]
  - Lacrimation increased [Recovered/Resolved]
  - Dysuria [Recovered/Resolved]
  - Eye irritation [Recovered/Resolved]
